FAERS Safety Report 6072488-4 (Version None)
Quarter: 2009Q1

REPORT INFORMATION
  Report Type: 
  Country: None (occurrence: None)
  Receive Date: 20090210
  Receipt Date: 20090202
  Transmission Date: 20090719
  Serious: Yes (Death, Other)
  Sender: FDA-Public Use
  Company Number: US-ROCHE-612040

PATIENT
  Age: 44 Year
  Sex: Female

DRUGS (6)
  1. GANCICLOVIR SODIUM [Suspect]
     Indication: DRUG USE FOR UNKNOWN INDICATION
     Dosage: RECEIVED FOR TEN DAYS
     Route: 042
  2. MYCOPHENOLATE MOFETIL [Suspect]
     Indication: PROPHYLAXIS AGAINST TRANSPLANT REJECTION
     Route: 065
  3. TACROLIMUS [Suspect]
     Indication: PROPHYLAXIS AGAINST TRANSPLANT REJECTION
     Route: 065
  4. PREDNISONE [Suspect]
     Indication: PROPHYLAXIS AGAINST TRANSPLANT REJECTION
     Route: 065
  5. ACYCLOVIR [Suspect]
     Indication: DRUG USE FOR UNKNOWN INDICATION
     Dosage: THERAPY RESUMED
     Route: 042
  6. ACYCLOVIR [Suspect]
     Dosage: GIVEN FOR 20 DAYS
     Route: 042

REACTIONS (5)
  - BACTERAEMIA [None]
  - BILE DUCT STENOSIS [None]
  - DEATH [None]
  - RESPIRATORY DISORDER [None]
  - SYSTEMIC CANDIDA [None]
